FAERS Safety Report 16235370 (Version 1)
Quarter: 2019Q2

REPORT INFORMATION
  Report Type: Spontaneous
  Country: RO (occurrence: RO)
  Receive Date: 20190424
  Receipt Date: 20190424
  Transmission Date: 20190711
  Serious: Yes (Other)
  Sender: FDA-Public Use
  Company Number: RO-PFIZER INC-2019171987

PATIENT
  Age: 51 Year
  Sex: Female

DRUGS (2)
  1. AXITINIB [Suspect]
     Active Substance: AXITINIB
     Indication: METASTATIC RENAL CELL CARCINOMA
     Dosage: 5 MG, 2X/DAY
     Route: 048
     Dates: start: 201706
  2. AXITINIB [Suspect]
     Active Substance: AXITINIB
     Dosage: 4 MG, DAILY
     Route: 048
     Dates: end: 201810

REACTIONS (15)
  - Back pain [Unknown]
  - Diarrhoea [Unknown]
  - Eyelid oedema [Unknown]
  - Vomiting [Unknown]
  - Neutropenia [Unknown]
  - Fatigue [Unknown]
  - Weight decreased [Recovered/Resolved]
  - Nausea [Unknown]
  - Hypothyroidism [Unknown]
  - Palmar-plantar erythrodysaesthesia syndrome [Unknown]
  - Periorbital oedema [Unknown]
  - Essential hypertension [Unknown]
  - Arthralgia [Unknown]
  - Mucosal inflammation [Unknown]
  - Decreased appetite [Unknown]
